FAERS Safety Report 9514647 (Version 1)
Quarter: 2013Q3

REPORT INFORMATION
  Report Type: Spontaneous
  Country: IN (occurrence: None)
  Receive Date: 20130906
  Receipt Date: 20130906
  Transmission Date: 20140515
  Serious: Yes (Hospitalization)
  Sender: FDA-Public Use
  Company Number: UCM201308-000049

PATIENT
  Age: 13 Year
  Sex: Female

DRUGS (2)
  1. DIVALPROEX SODIUM [Suspect]
     Indication: CONVULSION
     Dosage: 1250 MG/DAY IN TWO DIVIDED DOSES
     Route: 048
  2. PHENYTOIN [Suspect]
     Indication: EPILEPSY
     Route: 048

REACTIONS (5)
  - Coma [None]
  - Hyperammonaemia [None]
  - Metabolic acidosis [None]
  - Hyperlactacidaemia [None]
  - Respiratory disorder [None]
